FAERS Safety Report 10611204 (Version 3)
Quarter: 2016Q2

REPORT INFORMATION
  Report Type: Spontaneous
  Country: TR (occurrence: TR)
  Receive Date: 20141126
  Receipt Date: 20160614
  Transmission Date: 20160815
  Serious: Yes (Other)
  Sender: FDA-Public Use
  Company Number: TR-BAYER-2014-170861

PATIENT
  Age: 17 Year
  Sex: Female

DRUGS (1)
  1. NEXAVAR [Suspect]
     Active Substance: SORAFENIB
     Indication: OSTEOSARCOMA
     Dosage: UNK

REACTIONS (5)
  - Pulmonary vasculitis [None]
  - Pulmonary mass [Not Recovered/Not Resolved]
  - Metastases to lung [None]
  - Neoplasm malignant [None]
  - Off label use [None]
